FAERS Safety Report 17085203 (Version 1)
Quarter: 2019Q4

REPORT INFORMATION
  Report Type: Report from Study
  Country: None (occurrence: US)
  Receive Date: 20191127
  Receipt Date: 20191127
  Transmission Date: 20200122
  Serious: Yes (Other)
  Sender: FDA-Public Use
  Company Number: US-ABBVIE-18K-163-2309481-00

PATIENT
  Age: 56 Year
  Sex: Female

DRUGS (1)
  1. HUMIRA [Suspect]
     Active Substance: ADALIMUMAB
     Indication: HIDRADENITIS
     Route: 058
     Dates: start: 20180306

REACTIONS (7)
  - Surgery [Unknown]
  - Tongue discolouration [Recovering/Resolving]
  - Anaphylactic reaction [Unknown]
  - Glossodynia [Not Recovered/Not Resolved]
  - Diarrhoea [Unknown]
  - Allergic oedema [Recovering/Resolving]
  - Drug hypersensitivity [Recovering/Resolving]

NARRATIVE: CASE EVENT DATE: 20180321
